FAERS Safety Report 15090451 (Version 1)
Quarter: 2018Q2

REPORT INFORMATION
  Report Type: Spontaneous
  Country: GB (occurrence: GB)
  Receive Date: 20180629
  Receipt Date: 20180629
  Transmission Date: 20180711
  Serious: Yes (Other)
  Sender: FDA-Public Use
  Company Number: GB-TEVA-2018-GB-913368

PATIENT
  Age: 65 Year
  Sex: Male
  Weight: 83 kg

DRUGS (9)
  1. OMEPRAZOLE. [Suspect]
     Active Substance: OMEPRAZOLE
     Route: 065
     Dates: start: 20180201
  2. EZETIMIBE. [Concomitant]
     Active Substance: EZETIMIBE
     Dosage: 1 DOSAGE FORMS DAILY;
     Route: 065
     Dates: start: 20180201
  3. TICAGRELOR. [Concomitant]
     Active Substance: TICAGRELOR
     Dosage: 2 DOSAGE FORMS DAILY;
     Route: 065
     Dates: start: 20171109
  4. ACETYLSALICYLIC ACID [Concomitant]
     Active Substance: ASPIRIN
     Dosage: 1 DOSAGE FORMS DAILY;
     Route: 065
     Dates: start: 20180201
  5. COLCHICINE. [Concomitant]
     Active Substance: COLCHICINE
     Dosage: 2 DOSAGE FORMS DAILY;
     Route: 065
     Dates: start: 20180417, end: 20180418
  6. BISOPROLOL [Concomitant]
     Active Substance: BISOPROLOL
     Dosage: 1 DOSAGE FORMS DAILY;
     Route: 065
     Dates: start: 20180201
  7. ATORVASTATIN [Concomitant]
     Active Substance: ATORVASTATIN
     Dosage: 1 DOSAGE FORMS DAILY; AT NIGHT.
     Route: 065
     Dates: start: 20180201
  8. ALLOPURINOL. [Concomitant]
     Active Substance: ALLOPURINOL
     Dosage: 1 DOSAGE FORMS DAILY;
     Route: 065
     Dates: start: 20180417
  9. RAMIPRIL. [Concomitant]
     Active Substance: RAMIPRIL
     Dosage: 1 DOSAGE FORMS DAILY;
     Route: 065
     Dates: start: 20180201

REACTIONS (2)
  - Acute kidney injury [Recovered/Resolved]
  - Tubulointerstitial nephritis [Unknown]

NARRATIVE: CASE EVENT DATE: 20180425
